FAERS Safety Report 4606726-9 (Version None)
Quarter: 2005Q1

REPORT INFORMATION
  Report Type: 
  Country: None (occurrence: None)
  Receive Date: 20050116
  Receipt Date: 20040826
  Transmission Date: 20050727
  Serious: Yes (Death)
  Sender: FDA-Public Use
  Company Number: HQWYE667130AUG04

PATIENT
  Age: 55 Year
  Sex: Male

DRUGS (2)
  1. EFFEXOR [Suspect]
     Indication: DEPRESSION
     Dates: start: 20040101, end: 20040101
  2. UNSPECIFIED BENZODIAZEPINE (UNSPECIFIED BENZODIAZEPINE) [Concomitant]

REACTIONS (2)
  - COMPLETED SUICIDE [None]
  - INTENTIONAL MISUSE [None]
